FAERS Safety Report 21493845 (Version 1)
Quarter: 2022Q4

REPORT INFORMATION
  Report Type: Spontaneous
  Country: CN (occurrence: CN)
  Receive Date: 20221021
  Receipt Date: 20221021
  Transmission Date: 20230112
  Serious: Yes (Hospitalization)
  Sender: FDA-Public Use
  Company Number: CN-SA-SAC20221020002096

PATIENT
  Age: 78 Year
  Sex: Male
  Weight: 75 kg

DRUGS (17)
  1. ELOXATIN [Suspect]
     Active Substance: OXALIPLATIN
     Indication: Iron deficiency anaemia
     Dosage: 100 MG, QD
     Route: 041
     Dates: start: 20220930, end: 20220930
  2. ELOXATIN [Suspect]
     Active Substance: OXALIPLATIN
     Indication: Hypoproteinaemia
  3. ELOXATIN [Suspect]
     Active Substance: OXALIPLATIN
     Indication: Thoracic vertebral fracture
  4. ELOXATIN [Suspect]
     Active Substance: OXALIPLATIN
     Indication: Intracranial aneurysm
  5. ELOXATIN [Suspect]
     Active Substance: OXALIPLATIN
     Indication: Non-Hodgkin^s lymphoma
  6. ELOXATIN [Suspect]
     Active Substance: OXALIPLATIN
     Indication: Neoplasm
  7. ELOXATIN [Suspect]
     Active Substance: OXALIPLATIN
     Indication: Coeliac artery aneurysm
  8. GEMCITABINE [Suspect]
     Active Substance: GEMCITABINE
     Indication: Coeliac artery aneurysm
     Dosage: 800 MG, QD
     Route: 041
     Dates: start: 20220930, end: 20221001
  9. GEMCITABINE [Suspect]
     Active Substance: GEMCITABINE
     Indication: Non-Hodgkin^s lymphoma
  10. GEMCITABINE [Suspect]
     Active Substance: GEMCITABINE
     Indication: Neoplasm
  11. GEMCITABINE [Suspect]
     Active Substance: GEMCITABINE
     Indication: Hypertension
  12. GEMCITABINE [Suspect]
     Active Substance: GEMCITABINE
     Indication: Intracranial aneurysm
  13. GEMCITABINE [Suspect]
     Active Substance: GEMCITABINE
     Indication: Thoracic vertebral fracture
  14. GEMCITABINE [Suspect]
     Active Substance: GEMCITABINE
     Indication: Hypoproteinaemia
  15. GEMCITABINE [Suspect]
     Active Substance: GEMCITABINE
     Indication: Iron deficiency anaemia
  16. SODIUM CHLORIDE [Concomitant]
     Active Substance: SODIUM CHLORIDE
     Indication: Vehicle solution use
     Dosage: 100 ML, QD
     Route: 041
     Dates: start: 20220930, end: 20220930
  17. DEXTROSE [Concomitant]
     Active Substance: DEXTROSE
     Indication: Vehicle solution use
     Dosage: 250 ML, QD
     Route: 041
     Dates: start: 20220930, end: 20220930

REACTIONS (1)
  - Phlebitis [Recovering/Resolving]

NARRATIVE: CASE EVENT DATE: 20221003
